FAERS Safety Report 17638013 (Version 3)
Quarter: 2020Q2

REPORT INFORMATION
  Report Type: Report from Study
  Country: FR (occurrence: FR)
  Receive Date: 20200407
  Receipt Date: 20200518
  Transmission Date: 20200713
  Serious: Yes (Hospitalization)
  Sender: FDA-Public Use
  Company Number: FR-KYOWAKIRIN-2020CKK005096

PATIENT

DRUGS (7)
  1. PARACETAMOL [Concomitant]
     Active Substance: ACETAMINOPHEN
     Indication: PAIN
     Dosage: 1 G
     Dates: start: 20191026
  2. BUROSUMAB [Suspect]
     Active Substance: BUROSUMAB
     Dosage: 1.4 MG, EVERY 28 DAYS
     Route: 058
     Dates: start: 20200317, end: 20200317
  3. BUROSUMAB [Suspect]
     Active Substance: BUROSUMAB
     Dosage: 1 MG/KG, EVERY 28 DAYS
     Route: 058
     Dates: start: 2017, end: 20200317
  4. BUROSUMAB [Suspect]
     Active Substance: BUROSUMAB
     Dosage: 1 MG/KG, EVERY 28 DAYS
     Route: 058
     Dates: start: 20200410, end: 20200410
  5. CHOLECALCIFEROL [Concomitant]
     Active Substance: CHOLECALCIFEROL
     Indication: PROPHYLAXIS
     Dosage: 50000 IU
     Dates: start: 20190806
  6. ETHINYLESTRADIOL/DROSPIRENONE [Concomitant]
     Active Substance: DROSPIRENONE\ETHINYL ESTRADIOL
     Indication: CONTRACEPTION
     Dosage: UNK
     Dates: start: 20191010
  7. BUROSUMAB [Suspect]
     Active Substance: BUROSUMAB
     Indication: HEREDITARY HYPOPHOSPHATAEMIC RICKETS
     Dosage: 1.4 MG, EVERY 28
     Dates: start: 20200505

REACTIONS (1)
  - Pericarditis [Not Recovered/Not Resolved]

NARRATIVE: CASE EVENT DATE: 20200327
